FAERS Safety Report 11264003 (Version 1)
Quarter: 2015Q3

REPORT INFORMATION
  Report Type: Spontaneous
  Country: US (occurrence: US)
  Receive Date: 20150713
  Receipt Date: 20150713
  Transmission Date: 20151125
  Serious: No
  Sender: FDA-Public Use
  Company Number: US-JNJFOC-20150610664

PATIENT
  Sex: Male
  Weight: 79.38 kg

DRUGS (1)
  1. SPORANOX [Suspect]
     Active Substance: ITRACONAZOLE\SODIUM CHLORIDE
     Indication: INFECTION PROPHYLAXIS
     Dosage: EVERY NIGHT
     Route: 048
     Dates: start: 201411

REACTIONS (1)
  - Tooth discolouration [Not Recovered/Not Resolved]
